FAERS Safety Report 8956326 (Version 2)
Quarter: 2013Q2

REPORT INFORMATION
  Report Type: Spontaneous
  Country: US (occurrence: US)
  Receive Date: 20121210
  Receipt Date: 20130603
  Transmission Date: 20140414
  Serious: Yes (Hospitalization, Disabling, Other)
  Sender: FDA-Public Use
  Company Number: US-009507513-2012SP005874

PATIENT
  Sex: Female
  Weight: 75.3 kg

DRUGS (1)
  1. NUVARING [Suspect]
     Indication: CONTRACEPTION
     Dosage: UNK
     Dates: start: 200809, end: 200902

REACTIONS (5)
  - Pulmonary embolism [Unknown]
  - Anxiety [Unknown]
  - Type 2 diabetes mellitus [Not Recovered/Not Resolved]
  - Asthma [Unknown]
  - Depression [Unknown]
